FAERS Safety Report 25649509 (Version 1)
Quarter: 2025Q3

REPORT INFORMATION
  Report Type: Spontaneous
  Country: CN (occurrence: CN)
  Receive Date: 20250806
  Receipt Date: 20250806
  Transmission Date: 20251021
  Serious: Yes (Other)
  Sender: ROCHE
  Company Number: CN-ROCHE-10000349802

PATIENT
  Age: 42 Year
  Sex: Female

DRUGS (9)
  1. INAVOLISIB [Suspect]
     Active Substance: INAVOLISIB
     Indication: Hormone receptor positive breast cancer
     Route: 048
     Dates: start: 20250602
  2. INAVOLISIB [Suspect]
     Active Substance: INAVOLISIB
     Route: 048
     Dates: start: 20250621
  3. METFORMIN [Concomitant]
     Active Substance: METFORMIN HYDROCHLORIDE
  4. METFORMIN [Concomitant]
     Active Substance: METFORMIN HYDROCHLORIDE
  5. Dapagliflozin (SGLT2 inhibitor) [Concomitant]
  6. Dorzagliatin (Dipeptidyl Peptidase-4 (DPP4) inhibitor) [Concomitant]
  7. Miglitol (alpha-glucosidase inhibitor) [Concomitant]
  8. VILDAGLIPTIN [Concomitant]
     Active Substance: VILDAGLIPTIN
  9. REPAGLINIDE [Concomitant]
     Active Substance: REPAGLINIDE

REACTIONS (1)
  - Diabetic ketoacidosis [Unknown]
